FAERS Safety Report 7582785-9 (Version None)
Quarter: 2011Q2

REPORT INFORMATION
  Report Type: 
  Country: None (occurrence: None)
  Receive Date: 20110630
  Receipt Date: 20110624
  Transmission Date: 20111010
  Serious: Yes (Life-Threatening)
  Sender: FDA-Public Use
  Company Number: JP-PFIZER INC-2011140531

PATIENT
  Age: 12 Week
  Sex: Male
  Weight: 4.1 kg

DRUGS (4)
  1. DORNER [Suspect]
     Indication: HYPOXIA
     Dosage: 15 UG/DAY
     Route: 048
     Dates: start: 20080725, end: 20080922
  2. SILDENAFIL CITRATE [Suspect]
     Indication: PULMONARY ARTERIAL HYPERTENSION
     Dosage: 0.5 MG, 3X/DAY
     Route: 048
     Dates: start: 20080916, end: 20080920
  3. SILDENAFIL CITRATE [Suspect]
     Dosage: 1.0 MG, 3X/DAY
     Route: 048
     Dates: start: 20080921, end: 20080922
  4. PHENOBARBITAL TAB [Concomitant]
     Indication: SEDATION
     Dosage: 15 MG/DAY
     Route: 048
     Dates: start: 20080722, end: 20080920

REACTIONS (1)
  - INTERSTITIAL LUNG DISEASE [None]
